FAERS Safety Report 25913372 (Version 1)
Quarter: 2025Q4

REPORT INFORMATION
  Report Type: Spontaneous
  Country: CN (occurrence: CN)
  Receive Date: 20251013
  Receipt Date: 20251013
  Transmission Date: 20260118
  Serious: Yes (Other)
  Sender: Onesource Specialty Pharma
  Company Number: CN-STRIDES ARCOLAB LIMITED-2025OS000941

PATIENT
  Age: 36 Year
  Sex: Male

DRUGS (6)
  1. ETOPOSIDE [Suspect]
     Active Substance: ETOPOSIDE
     Indication: Testicular seminoma (pure) stage III
     Dosage: FOUR CYCLES
     Route: 065
  2. ETOPOSIDE [Suspect]
     Active Substance: ETOPOSIDE
     Indication: Clear cell renal cell carcinoma
  3. BLEOMYCIN [Suspect]
     Active Substance: BLEOMYCIN SULFATE
     Indication: Testicular seminoma (pure) stage III
     Dosage: FOUR CYCLES
     Route: 065
  4. BLEOMYCIN [Suspect]
     Active Substance: BLEOMYCIN SULFATE
     Indication: Clear cell renal cell carcinoma
  5. CISPLATIN [Suspect]
     Active Substance: CISPLATIN
     Indication: Testicular seminoma (pure) stage III
     Dosage: FOUR CYCLES
     Route: 065
  6. CISPLATIN [Suspect]
     Active Substance: CISPLATIN
     Indication: Clear cell renal cell carcinoma

REACTIONS (3)
  - Metastases to bone [Unknown]
  - Metastases to kidney [Unknown]
  - Off label use [Unknown]
